FAERS Safety Report 11935649 (Version 1)
Quarter: 2016Q1

REPORT INFORMATION
  Report Type: Spontaneous
  Country: US (occurrence: US)
  Receive Date: 20160121
  Receipt Date: 20160121
  Transmission Date: 20160526
  Serious: Yes (Hospitalization)
  Sender: FDA-Public Use
  Company Number: US-JNJFOC-20160112446

PATIENT

DRUGS (1)
  1. DARZALEX [Suspect]
     Active Substance: DARATUMUMAB
     Indication: PRODUCT USED FOR UNKNOWN INDICATION
     Dosage: 2X400 MG VIALS LOT# D5G08P1 AND 3X100 MG VIALS LOT#D5G09P1
     Route: 042

REACTIONS (2)
  - Asthenia [Unknown]
  - Anaemia [Unknown]
